FAERS Safety Report 16383636 (Version 1)
Quarter: 2019Q3

REPORT INFORMATION
  Report Type: Spontaneous
  Country: US (occurrence: US)
  Receive Date: 20190531
  Receipt Date: 20190531
  Transmission Date: 20191004
  Serious: Yes (Disabling)
  Sender: FDA-Public Use
  Company Number: None

PATIENT
  Age: 50 Year
  Sex: Female
  Weight: 97.65 kg

DRUGS (13)
  1. CORTISONE [Suspect]
     Active Substance: CORTISONE
  2. FISH OILS [Concomitant]
  3. DIGESTIVE ENZYMES [Concomitant]
     Active Substance: UNSPECIFIED INGREDIENT
  4. MAGNESIUM [Concomitant]
     Active Substance: MAGNESIUM
  5. PAIN RELIEVERS [Concomitant]
  6. CIPRO [Suspect]
     Active Substance: CIPROFLOXACIN HYDROCHLORIDE
     Indication: URINARY TRACT INFECTION
     Route: 048
     Dates: start: 20001103, end: 20001204
  7. IMMUNOPRO [Concomitant]
  8. FLAGYL [Suspect]
     Active Substance: METRONIDAZOLE\METRONIDAZOLE HYDROCHLORIDE
  9. TRACE MINERALS [Concomitant]
  10. LEVAQUIN [Suspect]
     Active Substance: LEVOFLOXACIN
     Indication: URINARY TRACT INFECTION
     Dates: start: 20110815, end: 20110822
  11. LUNESTA G [Concomitant]
  12. MULTIVITAMINS [Concomitant]
     Active Substance: VITAMINS
  13. NETTLES [Concomitant]

REACTIONS (16)
  - Anxiety [None]
  - Diverticulum [None]
  - Insomnia [None]
  - Ligament disorder [None]
  - Feeling abnormal [None]
  - Gastric disorder [None]
  - Depression [None]
  - Muscle rigidity [None]
  - Respiratory disorder [None]
  - Arthralgia [None]
  - Gait inability [None]
  - Gluten sensitivity [None]
  - Sleep apnoea syndrome [None]
  - Pain [None]
  - Fatigue [None]
  - Arrhythmia [None]

NARRATIVE: CASE EVENT DATE: 20190514
